FAERS Safety Report 13586340 (Version 1)
Quarter: 2017Q2

REPORT INFORMATION
  Report Type: Spontaneous
  Country: JP (occurrence: JP)
  Receive Date: 20170526
  Receipt Date: 20170526
  Transmission Date: 20170830
  Serious: Yes (Hospitalization, Disabling)
  Sender: FDA-Public Use
  Company Number: JP-ELI_LILLY_AND_COMPANY-JP201702007552

PATIENT
  Age: 65 Year
  Sex: Female
  Weight: 57 kg

DRUGS (10)
  1. DEXART [Concomitant]
     Active Substance: DEXAMETHASONE SODIUM PHOSPHATE
     Indication: PROPHYLAXIS
     Dosage: 13.2 MG, DAY 1
     Route: 042
     Dates: start: 20170120, end: 20170216
  2. FLOUROURACIL [Concomitant]
     Active Substance: FLUOROURACIL
     Dosage: 3600 MG, DAY1-2, EVERY 2 WEEKS
     Route: 042
     Dates: start: 20170120, end: 20170217
  3. RESTAMIN                           /00000401/ [Concomitant]
     Active Substance: DIPHENHYDRAMINE
     Route: 062
  4. CYRAMZA [Suspect]
     Active Substance: RAMUCIRUMAB
     Indication: COLON CANCER METASTATIC
     Dosage: 450 MG, EVERY 2 WEEKS
     Route: 042
     Dates: start: 20170120, end: 20170216
  5. RESTAMIN                           /00000401/ [Concomitant]
     Active Substance: DIPHENHYDRAMINE
     Indication: ALLERGY PROPHYLAXIS
     Dosage: 50 MG, DAY 1
     Route: 048
     Dates: start: 20170120, end: 20170216
  6. FLOUROURACIL [Concomitant]
     Active Substance: FLUOROURACIL
     Indication: COLON CANCER METASTATIC
     Dosage: 610 MG, DAY1
     Route: 042
     Dates: start: 20170120, end: 20170216
  7. HIRUDOID [Concomitant]
     Active Substance: GLYCOSAMINOGLYCANS
     Route: 062
  8. IRINOTECAN [Concomitant]
     Active Substance: IRINOTECAN
     Indication: COLON CANCER METASTATIC
     Dosage: 230 MG, DAY1, EVERY 2 WEEKS
     Route: 042
     Dates: start: 20170120, end: 20170216
  9. GRANISETRON [Concomitant]
     Active Substance: GRANISETRON
     Indication: PROPHYLAXIS
     Dosage: 3 MG, DAY 1
     Route: 042
     Dates: start: 20170120, end: 20170216
  10. LEVOFOLINATE                       /06682103/ [Concomitant]
     Indication: COLON CANCER METASTATIC
     Dosage: 300 MG, DAY1, EVERY 2 WEEKS
     Route: 042
     Dates: start: 20170120, end: 20170216

REACTIONS (2)
  - Neutrophil count decreased [Recovering/Resolving]
  - Peritonitis [Recovered/Resolved with Sequelae]

NARRATIVE: CASE EVENT DATE: 20170209
